FAERS Safety Report 6453204-0 (Version None)
Quarter: 2009Q4

REPORT INFORMATION
  Report Type: 
  Country: None (occurrence: None)
  Receive Date: 20091124
  Receipt Date: 20091116
  Transmission Date: 20100525
  Serious: Yes (Hospitalization)
  Sender: FDA-Public Use
  Company Number: NG-KINGPHARMUSA00001-K200901449

PATIENT
  Age: 27 Year
  Sex: Female

DRUGS (5)
  1. SEPTRA [Suspect]
     Indication: CD4 LYMPHOCYTES DECREASED
     Dosage: UNK
  2. SEPTRA [Suspect]
     Indication: PROPHYLAXIS
  3. NEVIRAPINE [Suspect]
     Indication: HIV INFECTION
     Dosage: UNK
  4. LAMIVUDINE [Concomitant]
     Indication: HIV INFECTION
     Dosage: UNK
  5. ZIDOVUDINE [Concomitant]
     Indication: HIV INFECTION
     Dosage: UNK

REACTIONS (14)
  - DERMATITIS BULLOUS [None]
  - DERMATITIS EXFOLIATIVE [None]
  - DRUG EXPOSURE DURING PREGNANCY [None]
  - DRUG INTERACTION [None]
  - DRY EYE [None]
  - EYE DISCHARGE [None]
  - HAEMATOCRIT DECREASED [None]
  - HYPOXIA [None]
  - KERATITIS [None]
  - STEVENS-JOHNSON SYNDROME [None]
  - SYMBLEPHARON [None]
  - TACHYCARDIA [None]
  - TACHYPNOEA [None]
  - VISUAL ACUITY REDUCED [None]
